FAERS Safety Report 24976564 (Version 2)
Quarter: 2025Q1

REPORT INFORMATION
  Report Type: Spontaneous
  Country: US (occurrence: US)
  Receive Date: 20250217
  Receipt Date: 20250224
  Transmission Date: 20250409
  Serious: No
  Sender: SANDOZ
  Company Number: CA-SANDOZ-SDZ2025US007582

PATIENT
  Sex: Female
  Weight: 81.63 kg

DRUGS (1)
  1. COMBIPATCH [Suspect]
     Active Substance: ESTRADIOL\NORETHINDRONE ACETATE
     Indication: Product used for unknown indication
     Route: 062
     Dates: start: 20250127

REACTIONS (5)
  - Urinary tract infection [Recovered/Resolved]
  - Illness [Recovered/Resolved]
  - Vulvovaginal discomfort [Recovered/Resolved]
  - Vulvovaginal swelling [Recovered/Resolved]
  - Discomfort [Recovered/Resolved]

NARRATIVE: CASE EVENT DATE: 20250101
